FAERS Safety Report 6168262-0 (Version None)
Quarter: 2009Q2

REPORT INFORMATION
  Report Type: 
  Country: None (occurrence: None)
  Receive Date: 20090423
  Receipt Date: 20090413
  Transmission Date: 20091009
  Serious: Yes (Hospitalization)
  Sender: FDA-Public Use
  Company Number: 234074K09USA

PATIENT
  Age: 29 Year
  Sex: Male

DRUGS (4)
  1. REBIF [Suspect]
     Indication: MULTIPLE SCLEROSIS
     Dosage: 44 MCG, 3 IN 1 WEEKS, SUBCUTANEOUS
     Route: 058
     Dates: start: 20030711, end: 20070301
  2. PAXIL [Concomitant]
  3. KLONOPIN [Concomitant]
  4. BACLOFEN [Concomitant]

REACTIONS (10)
  - BLOOD PRESSURE DECREASED [None]
  - DECUBITUS ULCER [None]
  - INFLUENZA LIKE ILLNESS [None]
  - MUSCLE FLAP OPERATION [None]
  - MUSCULOSKELETAL PAIN [None]
  - OSTEOMYELITIS [None]
  - OSTEONECROSIS [None]
  - PYREXIA [None]
  - SEPSIS [None]
  - STAPHYLOCOCCAL INFECTION [None]
